FAERS Safety Report 19168517 (Version 2)
Quarter: 2021Q2

REPORT INFORMATION
  Report Type: Spontaneous
  Country: RU (occurrence: RU)
  Receive Date: 20210422
  Receipt Date: 20210426
  Transmission Date: 20210717
  Serious: Yes (Other)
  Sender: FDA-Public Use
  Company Number: RU-GE HEALTHCARE LIFE SCIENCES-2021CSU001829

PATIENT

DRUGS (2)
  1. OMNIPAQUE [Suspect]
     Active Substance: IOHEXOL
     Indication: PRODUCT USED FOR UNKNOWN INDICATION
  2. OMNIPAQUE [Suspect]
     Active Substance: IOHEXOL
     Indication: ANGIOGRAM
     Dosage: UNK, SINGLE
     Route: 041
     Dates: start: 20210118, end: 20210118

REACTIONS (3)
  - Contusion [Unknown]
  - Skin erosion [Unknown]
  - Alopecia [Unknown]
